FAERS Safety Report 13353126 (Version 1)
Quarter: 2017Q1

REPORT INFORMATION
  Report Type: Spontaneous
  Country: US (occurrence: US)
  Receive Date: 20170320
  Receipt Date: 20170320
  Transmission Date: 20170429
  Serious: No
  Sender: FDA-Public Use
  Company Number: None

PATIENT
  Age: 32 Year
  Sex: Female

DRUGS (1)
  1. RHOGAM ULTRA-FILTERED PLUS [Suspect]
     Active Substance: HUMAN RHO(D) IMMUNE GLOBULIN

REACTIONS (8)
  - Abdominal pain upper [None]
  - Amniotic fluid volume increased [None]
  - Pain [None]
  - Exposure during pregnancy [None]
  - Urine output decreased [None]
  - Diarrhoea [None]
  - Fatigue [None]
  - Injection site pain [None]

NARRATIVE: CASE EVENT DATE: 20161219
